FAERS Safety Report 14194621 (Version 1)
Quarter: 2017Q4

REPORT INFORMATION
  Report Type: Spontaneous
  Country: US (occurrence: US)
  Receive Date: 20171116
  Receipt Date: 20171116
  Transmission Date: 20180321
  Serious: No
  Sender: FDA-Public Use
  Company Number: US-AMGEN-USASP2017171446

PATIENT
  Age: 60 Year
  Sex: Female

DRUGS (1)
  1. ENBREL [Suspect]
     Active Substance: ETANERCEPT
     Indication: PRODUCT USED FOR UNKNOWN INDICATION
     Dosage: UNK
     Route: 065

REACTIONS (5)
  - Lip pain [Recovering/Resolving]
  - Lip erythema [Recovering/Resolving]
  - Candida infection [Unknown]
  - Tongue erythema [Unknown]
  - Glossodynia [Unknown]

NARRATIVE: CASE EVENT DATE: 2017
